FAERS Safety Report 10741777 (Version 1)
Quarter: 2015Q1

REPORT INFORMATION
  Report Type: Spontaneous
  Country: US (occurrence: US)
  Receive Date: 20150127
  Receipt Date: 20150127
  Transmission Date: 20150721
  Serious: Yes (Other)
  Sender: FDA-Public Use
  Company Number: US-ELI_LILLY_AND_COMPANY-US201501007517

PATIENT
  Sex: Female

DRUGS (1)
  1. HUMALOG [Suspect]
     Active Substance: INSULIN LISPRO
     Indication: TYPE 1 DIABETES MELLITUS
     Dosage: 20 U, QD
     Route: 065
     Dates: start: 2008

REACTIONS (5)
  - Visual impairment [Unknown]
  - Drug dose omission [Unknown]
  - Arthritis [Unknown]
  - Memory impairment [Unknown]
  - Brain injury [Unknown]
